FAERS Safety Report 9323659 (Version 1)
Quarter: 2013Q2

REPORT INFORMATION
  Report Type: Report from Study
  Country: US (occurrence: US)
  Receive Date: 20130603
  Receipt Date: 20130603
  Transmission Date: 20140414
  Serious: Yes (Hospitalization)
  Sender: FDA-Public Use
  Company Number: PHEH2013US011733

PATIENT
  Age: 70 Year
  Sex: Male

DRUGS (13)
  1. EXJADE [Suspect]
     Indication: MYELODYSPLASTIC SYNDROME
     Dosage: 2 DF, DAILY
     Route: 048
  2. EXJADE [Suspect]
     Dosage: 2 DF, DAILY
     Route: 048
  3. THALOMID [Concomitant]
     Dosage: UNK UKN, UNK
  4. SPIRIVA HANDIHALER [Concomitant]
     Dosage: UNK UKN, UNK
  5. GLYBURIDE [Concomitant]
     Dosage: UNK UKN, UNK
  6. IPRATROPIUM BROMIDE AND ALBUTEROL SULFATE [Concomitant]
     Dosage: UNK UKN, UNK
  7. DIGOXIN [Concomitant]
     Dosage: UNK UKN, UNK
  8. TYLENOL [Concomitant]
     Dosage: UNK UKN, UNK
  9. VITAMIN B6 [Concomitant]
     Dosage: UNK UKN, UNK
  10. MAALOX MAX [Concomitant]
     Dosage: UNK UKN, UNK
  11. STOOL SOFTENER [Concomitant]
     Dosage: UNK UKN, UNK
  12. PREDNISONE [Concomitant]
     Dosage: UNK UKN, UNK
  13. MEGESTROL [Concomitant]
     Dosage: UNK UKN, UNK

REACTIONS (5)
  - Pneumonia [Unknown]
  - Dyspnoea [Unknown]
  - Urinary incontinence [Unknown]
  - Rash [Unknown]
  - Local swelling [Unknown]
